FAERS Safety Report 12351628 (Version 11)
Quarter: 2021Q3

REPORT INFORMATION
  Report Type: Spontaneous
  Country: CA (occurrence: CA)
  Receive Date: 20160510
  Receipt Date: 20210810
  Transmission Date: 20211014
  Serious: Yes (Death, Hospitalization, Disabling, Other)
  Sender: FDA-Public Use
  Company Number: CA-009507513-1603CAN002558

PATIENT
  Sex: Male
  Weight: 92 kg

DRUGS (52)
  1. CUBICIN [Suspect]
     Active Substance: DAPTOMYCIN
     Indication: OSTEOMYELITIS
     Dosage: 700 MG, 1 EVERY DAY (APPROX 8MG/KG)
     Route: 042
     Dates: start: 20160122, end: 20160226
  2. CUBICIN [Suspect]
     Active Substance: DAPTOMYCIN
     Dosage: 1 EVERY DAY, DOSAGE FORM: POWDER FOR SOLUTION FOR INJECTION
     Route: 065
  3. CEFTAROLINE FOSAMIL ACETATE [Suspect]
     Active Substance: CEFTAROLINE FOSAMIL
     Indication: INTERVERTEBRAL DISCITIS
     Dosage: 300 MG, 1 EVERY 12 HOURS
     Route: 042
  4. RIFAMPICIN [Suspect]
     Active Substance: RIFAMPIN
     Indication: INADEQUATE DIET
  5. RIFAMPICIN [Suspect]
     Active Substance: RIFAMPIN
     Indication: OESOPHAGEAL ABSCESS
  6. TIGECYCLINE. [Suspect]
     Active Substance: TIGECYCLINE
     Indication: SEPSIS
     Dosage: 100 MILLIGRAM
     Route: 042
  7. VANCOMYCIN [Suspect]
     Active Substance: VANCOMYCIN
     Indication: INTERVERTEBRAL DISCITIS
     Dosage: UNK
     Route: 065
  8. CUBICIN [Suspect]
     Active Substance: DAPTOMYCIN
     Indication: BURKHOLDERIA CEPACIA COMPLEX INFECTION
     Dosage: 900 MILLIGRAM, 1 EVERY 24 HRS, DOSAGE FORM: POWDER FOR SOLUTION FOR INJECTION
     Route: 042
  9. DOXYCYCLINE. [Suspect]
     Active Substance: DOXYCYCLINE
     Indication: PARASPINAL ABSCESS
     Dosage: UNK
     Route: 065
  10. TIGECYCLINE. [Suspect]
     Active Substance: TIGECYCLINE
     Indication: BURKHOLDERIA CEPACIA COMPLEX INFECTION
  11. DOXYCYCLINE. [Suspect]
     Active Substance: DOXYCYCLINE
     Indication: INTERVERTEBRAL DISCITIS
  12. RIFAMPICIN [Suspect]
     Active Substance: RIFAMPIN
     Indication: INTERVERTEBRAL DISCITIS
  13. VANCOMYCIN [Suspect]
     Active Substance: VANCOMYCIN
     Indication: SEPSIS
     Dosage: UNK
     Route: 065
  14. DOXYCYCLINE. [Suspect]
     Active Substance: DOXYCYCLINE
     Indication: OESOPHAGEAL ABSCESS
  15. DOXYCYCLINE. [Suspect]
     Active Substance: DOXYCYCLINE
     Indication: OSTEOMYELITIS
  16. LINEZOLID. [Suspect]
     Active Substance: LINEZOLID
     Indication: INADEQUATE DIET
  17. RIFAMPICIN [Suspect]
     Active Substance: RIFAMPIN
     Indication: OSTEOMYELITIS
     Dosage: UNK
     Route: 048
  18. VANCOMYCIN [Suspect]
     Active Substance: VANCOMYCIN
     Indication: PARASPINAL ABSCESS
     Dosage: DOSE ADJUSTED TO TARGET TROUGH 15?20 MG/L
     Route: 042
     Dates: start: 20151127, end: 20160120
  19. VANCOMYCIN [Suspect]
     Active Substance: VANCOMYCIN
     Indication: OSTEOMYELITIS
     Dosage: UNK
     Route: 065
  20. VANCOMYCIN [Suspect]
     Active Substance: VANCOMYCIN
     Indication: INADEQUATE DIET
     Dosage: UNK, DOSAGE FORM: NOT SPECIFIED
     Route: 042
  21. CUBICIN [Suspect]
     Active Substance: DAPTOMYCIN
     Indication: PARASPINAL ABSCESS
     Dosage: 900 MG, 1 EVERY DAY (APPROX 10MG/KG)
     Route: 042
     Dates: start: 20160120, end: 20160121
  22. CEFTAROLINE FOSAMIL ACETATE [Suspect]
     Active Substance: CEFTAROLINE FOSAMIL
     Indication: SEPSIS
     Dosage: UNK
     Route: 065
  23. CEFTAROLINE FOSAMIL ACETATE [Suspect]
     Active Substance: CEFTAROLINE FOSAMIL
     Indication: OESOPHAGEAL ABSCESS
     Dosage: UNK
     Route: 042
  24. DOXYCYCLINE. [Suspect]
     Active Substance: DOXYCYCLINE
     Indication: SEPSIS
  25. LINEZOLID. [Suspect]
     Active Substance: LINEZOLID
     Indication: SEPSIS
  26. RIFAMPICIN [Suspect]
     Active Substance: RIFAMPIN
     Indication: SEPSIS
  27. TIGECYCLINE. [Suspect]
     Active Substance: TIGECYCLINE
     Indication: OESOPHAGEAL ABSCESS
  28. CUBICIN [Suspect]
     Active Substance: DAPTOMYCIN
     Indication: SEPSIS
     Dosage: DOSAGE FORM: POWDER FOR SOLUTION FOR INJECTION
     Route: 065
  29. CUBICIN [Suspect]
     Active Substance: DAPTOMYCIN
     Dosage: 1 EVERY DAY, DOSAGE FORM: POWDER FOR SOLUTION FOR INJECTION
     Route: 042
  30. CEFTAROLINE FOSAMIL ACETATE [Suspect]
     Active Substance: CEFTAROLINE FOSAMIL
     Indication: PARASPINAL ABSCESS
     Dosage: 300 MG, 1 EVERY 12 HOURS
     Route: 042
     Dates: start: 20160322, end: 20160401
  31. CEFTAROLINE FOSAMIL ACETATE [Suspect]
     Active Substance: CEFTAROLINE FOSAMIL
     Indication: OSTEOMYELITIS
     Dosage: 300 MILLIGRAM
     Route: 042
  32. CEFTAROLINE FOSAMIL ACETATE [Suspect]
     Active Substance: CEFTAROLINE FOSAMIL
     Indication: INADEQUATE DIET
  33. LINEZOLID. [Suspect]
     Active Substance: LINEZOLID
     Indication: BURKHOLDERIA CEPACIA COMPLEX INFECTION
  34. RIFAMPICIN [Suspect]
     Active Substance: RIFAMPIN
     Indication: BURKHOLDERIA CEPACIA COMPLEX INFECTION
  35. TIGECYCLINE. [Suspect]
     Active Substance: TIGECYCLINE
     Indication: INTERVERTEBRAL DISCITIS
     Dosage: 100 MILLIGRAM, 1 EVERY 24 HOUR(S)
     Route: 042
  36. TIGECYCLINE. [Suspect]
     Active Substance: TIGECYCLINE
     Indication: INADEQUATE DIET
     Dosage: UNK
     Route: 065
  37. CUBICIN [Suspect]
     Active Substance: DAPTOMYCIN
     Indication: INADEQUATE DIET
     Dosage: 700 MILLIGRAM, 1 EVERY 24 HOURS, DOSAGE FORM: POWDER FOR SOLUTION FOR INJECTION
     Route: 042
  38. CUBICIN [Suspect]
     Active Substance: DAPTOMYCIN
     Indication: OESOPHAGEAL ABSCESS
     Dosage: 700 MILLIGRAM, 1 EVERY 24 HOURS, DOSAGE FORM: POWDER FOR SOLUTION FOR INJECTION
     Route: 042
  39. CUBICIN [Suspect]
     Active Substance: DAPTOMYCIN
     Dosage: 900 MILLIGRAM, 1 EVERY 24 HRS, DOSAGE FORM: POWDER FOR SOLUTION INTRAVENOUS
     Route: 042
  40. LINEZOLID. [Suspect]
     Active Substance: LINEZOLID
     Indication: PARASPINAL ABSCESS
     Dosage: UNK
     Route: 065
  41. LINEZOLID. [Suspect]
     Active Substance: LINEZOLID
     Indication: OSTEOMYELITIS
     Dosage: UNK
     Route: 048
  42. RIFAMPICIN [Suspect]
     Active Substance: RIFAMPIN
     Indication: PARASPINAL ABSCESS
     Dosage: UNK
     Route: 065
  43. TIGECYCLINE. [Suspect]
     Active Substance: TIGECYCLINE
     Indication: OSTEOMYELITIS
     Dosage: UNK, DOSAGE FORM: POWDER FOR SOLUTION INTRAVENOUS
     Route: 042
  44. VANCOMYCIN [Suspect]
     Active Substance: VANCOMYCIN
     Indication: BURKHOLDERIA CEPACIA COMPLEX INFECTION
  45. VANCOMYCIN [Suspect]
     Active Substance: VANCOMYCIN
     Indication: OESOPHAGEAL ABSCESS
  46. CUBICIN [Suspect]
     Active Substance: DAPTOMYCIN
     Indication: INTERVERTEBRAL DISCITIS
     Dosage: 1 EVERY 24 HRS, DOSAGE FORM: NOT SPECIFIED
     Route: 042
  47. CEFTAROLINE FOSAMIL ACETATE [Suspect]
     Active Substance: CEFTAROLINE FOSAMIL
     Indication: BURKHOLDERIA CEPACIA COMPLEX INFECTION
  48. DOXYCYCLINE. [Suspect]
     Active Substance: DOXYCYCLINE
     Indication: OSTEOMYELITIS
     Dosage: UNK
     Route: 048
  49. DOXYCYCLINE. [Suspect]
     Active Substance: DOXYCYCLINE
     Indication: BURKHOLDERIA CEPACIA COMPLEX INFECTION
  50. LINEZOLID. [Suspect]
     Active Substance: LINEZOLID
     Indication: INTERVERTEBRAL DISCITIS
     Dosage: UNK
     Route: 065
  51. LINEZOLID. [Suspect]
     Active Substance: LINEZOLID
     Indication: OESOPHAGEAL ABSCESS
  52. TIGECYCLINE. [Suspect]
     Active Substance: TIGECYCLINE
     Indication: PARASPINAL ABSCESS
     Dosage: 100 MG, ONCE
     Route: 042
     Dates: start: 20160314, end: 20160314

REACTIONS (8)
  - Off label use [Fatal]
  - Hypophagia [Fatal]
  - General physical health deterioration [Fatal]
  - Transaminases increased [Fatal]
  - Staphylococcal infection [Fatal]
  - Treatment failure [Fatal]
  - Thrombocytopenia [Fatal]
  - Product use in unapproved indication [Fatal]

NARRATIVE: CASE EVENT DATE: 2016
